FAERS Safety Report 9779292 (Version 1)
Quarter: 2013Q4

REPORT INFORMATION
  Report Type: Spontaneous
  Country: FR (occurrence: FR)
  Receive Date: 20131223
  Receipt Date: 20131223
  Transmission Date: 20140711
  Serious: Yes (Hospitalization)
  Sender: FDA-Public Use
  Company Number: FR-B.I. PHARMACEUTICALS,INC./RIDGEFIELD-2013-BI-42636FF

PATIENT
  Age: 78 Year
  Sex: Male

DRUGS (5)
  1. PRADAXA [Suspect]
     Indication: ARRHYTHMIA SUPRAVENTRICULAR
     Dosage: 300 MG
     Route: 048
     Dates: start: 20121123, end: 20130727
  2. TEMERIT 5 [Concomitant]
  3. AMIODARONE [Concomitant]
     Dosage: 200 MG
     Dates: start: 201303
  4. LASILIX 40 [Concomitant]
     Dates: start: 201209
  5. COVERSYL [Concomitant]
     Dates: start: 201209

REACTIONS (3)
  - Melaena [Recovered/Resolved]
  - Haemorrhagic anaemia [Recovered/Resolved]
  - Condition aggravated [Recovered/Resolved]
